FAERS Safety Report 15614147 (Version 1)
Quarter: 2018Q4

REPORT INFORMATION
  Report Type: Spontaneous
  Country: US (occurrence: US)
  Receive Date: 20181113
  Receipt Date: 20181113
  Transmission Date: 20190205
  Serious: No
  Sender: FDA-Public Use
  Company Number: US-PFIZER INC-2018457647

PATIENT

DRUGS (1)
  1. LYRICA [Suspect]
     Active Substance: PREGABALIN
     Dosage: UNK, TWO TIMES A DAY

REACTIONS (3)
  - Head discomfort [Unknown]
  - Malaise [Unknown]
  - Discomfort [Unknown]
